FAERS Safety Report 23760876 (Version 2)
Quarter: 2024Q3

REPORT INFORMATION
  Report Type: Spontaneous
  Country: US (occurrence: US)
  Receive Date: 20240419
  Receipt Date: 20240711
  Transmission Date: 20241016
  Serious: No
  Sender: LEO PHARM
  Company Number: US-LEO Pharma-369311

PATIENT
  Age: 63 Year
  Sex: Male

DRUGS (1)
  1. ADBRY [Suspect]
     Active Substance: TRALOKINUMAB-LDRM
     Indication: Product used for unknown indication

REACTIONS (3)
  - Swelling of eyelid [Unknown]
  - Rash [Unknown]
  - Eyelid thickening [Unknown]
